FAERS Safety Report 23558991 (Version 1)
Quarter: 2024Q1

REPORT INFORMATION
  Report Type: Report from Study
  Country: JP (occurrence: JP)
  Receive Date: 20240223
  Receipt Date: 20240223
  Transmission Date: 20240410
  Serious: Yes (Other)
  Sender: FDA-Public Use
  Company Number: JP-UCBJ-CD201607677UCBPHAPROD

PATIENT
  Age: 65 Year
  Sex: Male

DRUGS (9)
  1. CERTOLIZUMAB PEGOL [Suspect]
     Active Substance: CERTOLIZUMAB PEGOL
     Indication: Rheumatoid arthritis
     Dosage: 400 MILLIGRAM, EV 2 WEEKS(QOW)
     Route: 058
     Dates: start: 20140925, end: 20141024
  2. CERTOLIZUMAB PEGOL [Suspect]
     Active Substance: CERTOLIZUMAB PEGOL
     Dosage: 200 MILLIGRAM, EV 2 WEEKS(QOW)
     Route: 058
     Dates: start: 20141107, end: 20150227
  3. PROGRAF [Suspect]
     Active Substance: TACROLIMUS
     Indication: Rheumatoid arthritis
     Dosage: 1.5 MILLIGRAM, ONCE DAILY (QD)
     Route: 048
     Dates: start: 20141204, end: 20150115
  4. PROGRAF [Suspect]
     Active Substance: TACROLIMUS
     Dosage: 2 MILLIGRAM, ONCE DAILY (QD)
     Route: 048
     Dates: start: 20150116, end: 20150313
  5. PREDONINE [Suspect]
     Active Substance: PREDNISOLONE
     Indication: Rheumatoid arthritis
     Dosage: 5 MILLIGRAM, ONCE DAILY (QD)
     Route: 048
     Dates: end: 20141023
  6. PREDONINE [Suspect]
     Active Substance: PREDNISOLONE
     Dosage: 3 MILLIGRAM, ONCE DAILY (QD)
     Route: 048
     Dates: start: 20141024
  7. IGURATIMOD [Concomitant]
     Active Substance: IGURATIMOD
     Indication: Rheumatoid arthritis
     Dosage: 50 MG, ONCE DAILY (QD)
     Route: 048
  8. BUCILLAMINE [Concomitant]
     Active Substance: BUCILLAMINE
     Indication: Rheumatoid arthritis
     Dosage: 200 MILLIGRAM, ONCE DAILY (QD)
     Route: 048
  9. CELECOXIB [Concomitant]
     Active Substance: CELECOXIB
     Indication: Rheumatoid arthritis
     Dosage: 400 MILLIGRAM, ONCE DAILY (QD)
     Route: 048

REACTIONS (1)
  - Upper respiratory tract infection [Recovering/Resolving]

NARRATIVE: CASE EVENT DATE: 20150312
